FAERS Safety Report 20591605 (Version 3)
Quarter: 2022Q3

REPORT INFORMATION
  Report Type: Report from Study
  Country: FR (occurrence: None)
  Receive Date: 20220314
  Receipt Date: 20220814
  Transmission Date: 20221027
  Serious: Yes (Hospitalization)
  Sender: FDA-Public Use
  Company Number: FR-ROCHE-3042792

PATIENT
  Age: 54 Year
  Sex: Male
  Weight: 104 kg

DRUGS (6)
  1. TIRAGOLUMAB [Suspect]
     Active Substance: TIRAGOLUMAB
     Indication: Squamous cell carcinoma of lung
     Dosage: ON 15/FEB/2022, THE PATIENT HAD MOST RECENT DOSE (840 MG) OF TIRAGOLUMAB.
     Route: 042
     Dates: start: 20220118
  2. ATEZOLIZUMAB [Suspect]
     Active Substance: ATEZOLIZUMAB
     Indication: Squamous cell carcinoma of lung
     Dosage: ON 15/FEB/2022, THE PATIENT HAD MOST RECENT DOSE (1680 MG) OF ATEZOLIZUMAB.
     Route: 042
     Dates: start: 20220118
  3. DOXYCYCLINE [Concomitant]
     Active Substance: DOXYCYCLINE
     Indication: Pustule
     Dates: end: 202204
  4. DOXYCYCLINE [Concomitant]
     Active Substance: DOXYCYCLINE
     Dates: start: 20220502, end: 20220615
  5. CHLORHEXIDINE GLUCONATE\CHLOROCRESOL\HEXAMIDINE DIISETHIONATE [Concomitant]
     Active Substance: CHLORHEXIDINE GLUCONATE\CHLOROCRESOL\HEXAMIDINE DIISETHIONATE
     Indication: Pustule
     Dates: start: 202205
  6. CLOBETASOL PROPIONATE [Concomitant]
     Active Substance: CLOBETASOL PROPIONATE
     Indication: Pustule
     Dosage: UNK OTHER
     Route: 061
     Dates: start: 20220608

REACTIONS (1)
  - Interstitial lung disease [Not Recovered/Not Resolved]

NARRATIVE: CASE EVENT DATE: 20220301
